FAERS Safety Report 9082016 (Version 1)
Quarter: 2013Q1

REPORT INFORMATION
  Report Type: Spontaneous
  Country: US (occurrence: US)
  Receive Date: 20130130
  Receipt Date: 20130130
  Transmission Date: 20140127
  Serious: No
  Sender: FDA-Public Use
  Company Number: US-ABBOTT-12P-163-0966812-00

PATIENT
  Age: 16 Year
  Sex: Female
  Weight: 88.53 kg

DRUGS (5)
  1. HUMIRA 40 MG/0.8 ML PEN [Suspect]
     Indication: JUVENILE IDIOPATHIC ARTHRITIS
     Dates: start: 20120730
  2. MELOXICAM [Concomitant]
     Indication: JUVENILE IDIOPATHIC ARTHRITIS
     Dates: start: 201207
  3. VITAMIN D [Concomitant]
     Indication: MINERAL SUPPLEMENTATION
  4. FISH OIL [Concomitant]
     Indication: VITAMIN SUPPLEMENTATION
  5. IRON [Concomitant]
     Indication: ANAEMIA

REACTIONS (1)
  - Injection site pain [Recovered/Resolved]
